FAERS Safety Report 18745794 (Version 2)
Quarter: 2021Q1

REPORT INFORMATION
  Report Type: Report from Study
  Country: NL (occurrence: NL)
  Receive Date: 20210115
  Receipt Date: 20210204
  Transmission Date: 20210419
  Serious: Yes (Death)
  Sender: FDA-Public Use
  Company Number: NL-PFIZER INC-2021001923

PATIENT
  Age: 55 Year
  Sex: Male

DRUGS (1)
  1. CYTARABINE. [Suspect]
     Active Substance: CYTARABINE
     Indication: MYELOID LEUKAEMIA
     Dosage: 1 G/M2, 2X/DAY FOR 6 DAYS

REACTIONS (3)
  - Pulmonary toxicity [Fatal]
  - Gastrointestinal toxicity [Fatal]
  - Renal tubular necrosis [Fatal]
